FAERS Safety Report 12861464 (Version 1)
Quarter: 2016Q4

REPORT INFORMATION
  Report Type: Report from Study
  Country: US (occurrence: US)
  Receive Date: 20161019
  Receipt Date: 20161019
  Transmission Date: 20170207
  Serious: No
  Sender: FDA-Public Use
  Company Number: US-AMGEN-USASL2016140969

PATIENT
  Age: 46 Year
  Sex: Female

DRUGS (1)
  1. ENBREL [Suspect]
     Active Substance: ETANERCEPT
     Indication: ANKYLOSING SPONDYLITIS
     Dosage: UNK UNK, QWK
     Route: 065
     Dates: start: 20160907

REACTIONS (5)
  - Musculoskeletal chest pain [Not Recovered/Not Resolved]
  - Tendonitis [Not Recovered/Not Resolved]
  - Therapy non-responder [Unknown]
  - Spinal pain [Not Recovered/Not Resolved]
  - Back pain [Not Recovered/Not Resolved]

NARRATIVE: CASE EVENT DATE: 2016
